FAERS Safety Report 15352474 (Version 3)
Quarter: 2018Q4

REPORT INFORMATION
  Report Type: Spontaneous
  Country: US (occurrence: US)
  Receive Date: 20180905
  Receipt Date: 20181211
  Transmission Date: 20190204
  Serious: Yes (Hospitalization, Other)
  Sender: FDA-Public Use
  Company Number: US-OTSUKA-2018_022749

PATIENT
  Sex: Female

DRUGS (117)
  1. ABILIFY [Suspect]
     Active Substance: ARIPIPRAZOLE
     Indication: SCHIZOAFFECTIVE DISORDER
     Dosage: 15 MG, QD (STRENGTH: 30 ,MG, TAKE ONE-HALF TABLET BY MOUTH EVERY MORNING)
     Route: 048
     Dates: start: 20140919, end: 20150920
  2. ABILIFY [Suspect]
     Active Substance: ARIPIPRAZOLE
     Indication: SCHIZOPHRENIA
     Dosage: 10 MG, QD
     Route: 048
     Dates: start: 20150123, end: 20160124
  3. ABILIFY [Suspect]
     Active Substance: ARIPIPRAZOLE
     Indication: DEPRESSION
     Dosage: 10 MG, QD (STRENGTH: 20 MG TAKE ONE-HALF TABLET BY MOUTH EVERY MORNING)
     Route: 048
     Dates: start: 20140808, end: 20150809
  4. ABILIFY [Suspect]
     Active Substance: ARIPIPRAZOLE
     Dosage: 20 MG, QD
     Route: 048
     Dates: start: 20120409, end: 20130410
  5. ABILIFY [Suspect]
     Active Substance: ARIPIPRAZOLE
     Dosage: 20 MG, QD
     Route: 048
     Dates: start: 20100823, end: 20110824
  6. ABILIFY [Suspect]
     Active Substance: ARIPIPRAZOLE
     Dosage: 10 MG, QD ( (STRENGTH: 20 MG, TAKE ONE HALF TABLET)
     Route: 048
     Dates: start: 20081216, end: 20091217
  7. RISPERIDONE. [Concomitant]
     Active Substance: RISPERIDONE
     Indication: PRODUCT USED FOR UNKNOWN INDICATION
     Dosage: 1 MG, QD (ONE-HALF TABLET BY MOUTH EVERY MORNING AND TAKE ONE AND ONE-HALF AT BEDTIME)
     Route: 048
     Dates: start: 20141219, end: 20151220
  8. SERTRALINE HCL [Concomitant]
     Active Substance: SERTRALINE HYDROCHLORIDE
     Indication: AFFECTIVE DISORDER
     Dosage: 50 MG, QD (STRENGTH: 100 MG, TAKE ONE-HALF TABLET BY MOUTH EVERY MORNING)
     Route: 048
     Dates: start: 20140629, end: 20150130
  9. SERTRALINE HCL [Concomitant]
     Active Substance: SERTRALINE HYDROCHLORIDE
     Dosage: 50 MG, QD (STRENGTH: 100 MG, TAKE ONE-HALF TABLET BY MOUTH EVERY MORNING)
     Route: 048
     Dates: start: 20130114, end: 20130213
  10. BISACODYL. [Concomitant]
     Active Substance: BISACODYL
     Indication: PRODUCT USED FOR UNKNOWN INDICATION
     Dosage: 10 MG, QD AS NEEDED
     Route: 048
     Dates: start: 20120603, end: 20120703
  11. ORLISTAT. [Concomitant]
     Active Substance: ORLISTAT
     Indication: PRODUCT USED FOR UNKNOWN INDICATION
     Dosage: 120 MG, TID
     Route: 048
     Dates: start: 20110610, end: 20110710
  12. ACETAMINOPHEN. [Concomitant]
     Active Substance: ACETAMINOPHEN
     Indication: PYREXIA
     Dosage: 650 MG, TID (ASS NEEDED)
     Route: 048
     Dates: start: 20100613, end: 20100617
  13. DIPHENHYDRAMINE. [Concomitant]
     Active Substance: DIPHENHYDRAMINE
     Indication: PRODUCT USED FOR UNKNOWN INDICATION
     Dosage: 50 MG, EVERY 6 HRS A NEEDED
     Route: 048
     Dates: start: 20100613, end: 20100617
  14. INFLUENZA [Concomitant]
     Active Substance: INFLUENZA VIRUS VACCINE
     Indication: IMMUNISATION
     Dosage: UNK
     Route: 065
     Dates: start: 20140926, end: 20140926
  15. INFLUENZA [Concomitant]
     Active Substance: INFLUENZA VIRUS VACCINE
     Dosage: UNK
     Route: 065
     Dates: start: 201211, end: 201211
  16. INFLUENZA [Concomitant]
     Active Substance: INFLUENZA VIRUS VACCINE
     Dosage: UNK
     Route: 065
     Dates: start: 20111118, end: 20111118
  17. FLUCONAZOLE. [Concomitant]
     Active Substance: FLUCONAZOLE
     Indication: PRODUCT USED FOR UNKNOWN INDICATION
     Dosage: UNK
     Route: 065
  18. ABILIFY [Suspect]
     Active Substance: ARIPIPRAZOLE
     Dosage: 20 MG, QD
     Route: 048
     Dates: start: 20120719, end: 20130720
  19. ABILIFY [Suspect]
     Active Substance: ARIPIPRAZOLE
     Dosage: 20 MG, QD
     Route: 048
     Dates: start: 20130102, end: 20130201
  20. ABILIFY [Suspect]
     Active Substance: ARIPIPRAZOLE
     Dosage: 20 MG, QD
     Route: 048
     Dates: start: 20100617, end: 20110618
  21. ABILIFY [Suspect]
     Active Substance: ARIPIPRAZOLE
     Dosage: 10 MG, QD ( (STRENGTH: 20 MG, TAKE ONE HALF TABLET)
     Route: 048
     Dates: start: 20090630, end: 20100701
  22. LAMOTRIGINE. [Concomitant]
     Active Substance: LAMOTRIGINE
     Dosage: STRENGTH: 200 MG, TAKE ONE-HALF TABLET MORNING FOR 14 DAYS, THEN TAKE ONE EVERY MORNING
     Route: 048
     Dates: start: 20140515, end: 20150516
  23. VALACYCLOVIR HCL [Concomitant]
     Active Substance: VALACYCLOVIR HYDROCHLORIDE
     Dosage: 1 G, TID
     Route: 048
     Dates: start: 20080303, end: 20080402
  24. TOPIRAMATE. [Concomitant]
     Active Substance: TOPIRAMATE
     Dosage: 100 MG, QD (TAKE ONE-HALF TABLET TWICE A DAY FOR 7 DAYS, THEN ONE TABLET)
     Route: 048
     Dates: start: 20100302, end: 20110303
  25. LORATADINE. [Concomitant]
     Active Substance: LORATADINE
     Indication: HYPERSENSITIVITY
     Dosage: 10 MG, QD
     Route: 048
     Dates: start: 20130318, end: 20140319
  26. BUSPIRONE HCL [Concomitant]
     Active Substance: BUSPIRONE HYDROCHLORIDE
     Dosage: 5 MG, BID AS NEEDED (ONE HALF TABLET, STRENGTH: 10 MG)
     Route: 065
     Dates: start: 20100823, end: 20110824
  27. ACETAMINOPHEN. [Concomitant]
     Active Substance: ACETAMINOPHEN
     Indication: PAIN
     Dosage: 325 MG, UNK
     Route: 048
     Dates: start: 20160913, end: 20160913
  28. CHOLECALCIFEROL [Concomitant]
     Active Substance: CHOLECALCIFEROL
     Dosage: 2000 IU, QD
     Route: 048
     Dates: start: 20160916, end: 20170917
  29. BACLOFEN. [Concomitant]
     Active Substance: BACLOFEN
     Indication: PRODUCT USED FOR UNKNOWN INDICATION
     Dosage: UNK
     Route: 065
  30. ABILIFY [Suspect]
     Active Substance: ARIPIPRAZOLE
     Indication: AFFECTIVE DISORDER
     Dosage: 20 MG, QD
     Route: 065
     Dates: end: 201611
  31. ABILIFY [Suspect]
     Active Substance: ARIPIPRAZOLE
     Dosage: 20 MG, QD
     Route: 048
     Dates: start: 20130208, end: 20140209
  32. ABILIFY [Suspect]
     Active Substance: ARIPIPRAZOLE
     Dosage: 20 MG, QD
     Route: 048
     Dates: start: 20100623, end: 20110724
  33. SERTRALINE HCL [Concomitant]
     Active Substance: SERTRALINE HYDROCHLORIDE
     Dosage: 50 MG, QD (STRENGTH: 100 MG, TAKE ONE-HALF TABLET BY MOUTH EVERY MORNING)
     Route: 048
     Dates: start: 20110513, end: 20120513
  34. ORLISTAT. [Concomitant]
     Active Substance: ORLISTAT
     Dosage: 120 MG, TID
     Route: 048
     Dates: start: 20110513, end: 20110612
  35. LORAZEPAM. [Concomitant]
     Active Substance: LORAZEPAM
     Indication: PRODUCT USED FOR UNKNOWN INDICATION
     Dosage: 2MG/1ML , Q4HR AS NEEDED
     Route: 030
     Dates: start: 20100613, end: 20100617
  36. METHOCARBAMOL. [Concomitant]
     Active Substance: METHOCARBAMOL
     Indication: MUSCLE RELAXANT THERAPY
     Dosage: 1000 MG, TID (AS NEEDED)
     Route: 065
     Dates: start: 20100202, end: 20100304
  37. AZITHROMYCIN ANHYDROUS. [Concomitant]
     Active Substance: AZITHROMYCIN ANHYDROUS
     Dosage: 1000 MG, QD (STRENGTH:250 MG  TAKE FOUR TABLETS
     Route: 065
     Dates: start: 20081010, end: 20081109
  38. CHOLECALCIFEROL [Concomitant]
     Active Substance: CHOLECALCIFEROL
     Dosage: 2000 IU, QD
     Route: 048
     Dates: start: 20161014, end: 20161113
  39. ABILIFY [Suspect]
     Active Substance: ARIPIPRAZOLE
     Dosage: 10 MG, QD ( (STRENGTH: 20 MG, TAKE ONE HALF TABLET)
     Route: 048
     Dates: start: 20091002, end: 20101003
  40. ABILIFY [Suspect]
     Active Substance: ARIPIPRAZOLE
     Dosage: 15 MG, QD
     Route: 065
  41. LAMOTRIGINE. [Concomitant]
     Active Substance: LAMOTRIGINE
     Dosage: 25 MG, QD FOR 14 DAYS
     Route: 048
     Dates: start: 20140507, end: 20140606
  42. LAMOTRIGINE. [Concomitant]
     Active Substance: LAMOTRIGINE
     Dosage: STRENGTH: 200 MG, TAKE ONE-HALF TABLET MORNING FOR 14 DAYS, THEN TAKE ONE EVERY MORNING
     Route: 048
  43. VENLAFAXINE HCL [Concomitant]
     Active Substance: VENLAFAXINE HYDROCHLORIDE
     Dosage: 75 MG, QD
     Route: 048
     Dates: start: 20140515, end: 20140614
  44. VALACYCLOVIR HCL [Concomitant]
     Active Substance: VALACYCLOVIR HYDROCHLORIDE
     Dosage: 500 MG, QD
     Route: 048
  45. SERTRALINE HCL [Concomitant]
     Active Substance: SERTRALINE HYDROCHLORIDE
     Dosage: 50 MG, QD (STRENGTH: 100 MG, TAKE ONE-HALF TABLET BY MOUTH EVERY MORNING)
     Route: 048
     Dates: start: 20091002, end: 20101003
  46. ORLISTAT. [Concomitant]
     Active Substance: ORLISTAT
     Dosage: 120 MG, TID
     Route: 048
     Dates: start: 20091030, end: 20091129
  47. ORLISTAT. [Concomitant]
     Active Substance: ORLISTAT
     Dosage: 120 MG, TID
     Route: 048
     Dates: start: 20090902, end: 20091002
  48. MULTIVITAMIN [Concomitant]
     Active Substance: VITAMINS
     Indication: VITAMIN SUPPLEMENTATION
     Dosage: 1 DF, QD AS NEEDED
     Route: 065
     Dates: start: 20100312, end: 20110313
  49. CYCLOBENZAPRINE. [Concomitant]
     Active Substance: CYCLOBENZAPRINE
     Dosage: 10 MG, TID
     Route: 048
  50. CHOLECALCIFEROL [Concomitant]
     Active Substance: CHOLECALCIFEROL
     Indication: PRODUCT USED FOR UNKNOWN INDICATION
     Dosage: 1000 IU, QD
     Route: 048
     Dates: start: 20160913, end: 20170914
  51. LURASIDONE [Concomitant]
     Active Substance: LURASIDONE
     Dosage: 60 MG, QD
     Route: 048
     Dates: start: 20160930, end: 20171001
  52. OMEPRAZOLE. [Concomitant]
     Active Substance: OMEPRAZOLE
     Indication: GASTRIC ULCER
     Dosage: 20 MG, QD
     Route: 065
  53. TEMAZEPAM. [Concomitant]
     Active Substance: TEMAZEPAM
     Dosage: 30 MG, QD
     Route: 065
     Dates: start: 20100624, end: 20100724
  54. SULFAMETHOXAZOLE [Concomitant]
     Active Substance: SULFAMETHOXAZOLE
     Indication: PRODUCT USED FOR UNKNOWN INDICATION
     Dosage: UNK
     Route: 065
  55. ABILIFY [Suspect]
     Active Substance: ARIPIPRAZOLE
     Indication: BIPOLAR DISORDER
     Dosage: 5 MG, QD
     Route: 065
     Dates: start: 200801
  56. ABILIFY [Suspect]
     Active Substance: ARIPIPRAZOLE
     Dosage: 10 MG, QD
     Route: 048
     Dates: start: 20100615, end: 20100617
  57. ABILIFY [Suspect]
     Active Substance: ARIPIPRAZOLE
     Dosage: 10 MG, QD ( (STRENGTH: 20 MG, TAKE ONE HALF TABLET)
     Route: 048
     Dates: start: 20080320, end: 20090331
  58. LAMOTRIGINE. [Concomitant]
     Active Substance: LAMOTRIGINE
     Dosage: STRENGTH: 200 MG, TAKE ONE-HALF TABLET MORNING FOR 14 DAYS, THEN TAKE ONE EVERY MORNING
     Route: 048
     Dates: start: 20140515, end: 20140614
  59. VALACYCLOVIR HCL [Concomitant]
     Active Substance: VALACYCLOVIR HYDROCHLORIDE
     Indication: VIRAL INFECTION
     Dosage: 500 MG, QD
     Route: 048
     Dates: start: 20140408, end: 20150409
  60. SERTRALINE HCL [Concomitant]
     Active Substance: SERTRALINE HYDROCHLORIDE
     Dosage: 50 MG, QD (STRENGTH: 100 MG, TAKE ONE-HALF TABLET BY MOUTH EVERY MORNING)
     Route: 048
     Dates: start: 20120719, end: 20130720
  61. SERTRALINE HCL [Concomitant]
     Active Substance: SERTRALINE HYDROCHLORIDE
     Dosage: 50 MG, QD (STRENGTH: 100 MG, TAKE ONE-HALF TABLET BY MOUTH EVERY MORNING)
     Route: 048
     Dates: start: 20130414, end: 20140213
  62. SERTRALINE HCL [Concomitant]
     Active Substance: SERTRALINE HYDROCHLORIDE
     Dosage: 50 MG, QD (STRENGTH: 100 MG, TAKE ONE-HALF TABLET BY MOUTH EVERY MORNING)
     Route: 048
     Dates: start: 20101223, end: 20111224
  63. SERTRALINE HCL [Concomitant]
     Active Substance: SERTRALINE HYDROCHLORIDE
     Dosage: 50 MG, QD (STRENGTH: 100 MG, TAKE ONE-HALF TABLET BY MOUTH EVERY MORNING)
     Route: 048
     Dates: start: 20090630, end: 20100701
  64. SERTRALINE HCL [Concomitant]
     Active Substance: SERTRALINE HYDROCHLORIDE
     Dosage: 50 MG, QD (STRENGTH: 100 MG, TAKE ONE-HALF TABLET BY MOUTH EVERY MORNING)
     Route: 048
     Dates: start: 20080908, end: 20090909
  65. CIPROFLOXACIN HCL [Concomitant]
     Active Substance: CIPROFLOXACIN HYDROCHLORIDE
     Indication: INFECTION
     Dosage: 500 MG, BID
     Route: 048
     Dates: start: 20120103, end: 20120703
  66. ORLISTAT. [Concomitant]
     Active Substance: ORLISTAT
     Dosage: 120 MG, TID
     Route: 048
     Dates: start: 20110314, end: 20110413
  67. MULTIVITAMIN [Concomitant]
     Active Substance: VITAMINS
     Dosage: 1 DF, QD
     Route: 048
     Dates: start: 20160913, end: 20170914
  68. DIPHENHYDRAMINE. [Concomitant]
     Active Substance: DIPHENHYDRAMINE
     Indication: PRODUCT USED FOR UNKNOWN INDICATION
     Dosage: 50MG/1ML, Q6H
     Route: 030
     Dates: start: 20100613, end: 20100613
  69. AZITHROMYCIN ANHYDROUS. [Concomitant]
     Active Substance: AZITHROMYCIN ANHYDROUS
     Indication: INFECTION
     Dosage: 125 MG, QD (ONE HALF TABLET)
     Route: 048
     Dates: start: 20090108, end: 20090207
  70. LURASIDONE [Concomitant]
     Active Substance: LURASIDONE
     Dosage: 40 MG, QD
     Route: 048
     Dates: start: 20160912, end: 20160913
  71. NAPROXEN. [Concomitant]
     Active Substance: NAPROXEN
     Indication: PRODUCT USED FOR UNKNOWN INDICATION
     Dosage: UNK
     Route: 065
  72. METRONIDAZOLE. [Concomitant]
     Active Substance: METRONIDAZOLE
     Indication: PRODUCT USED FOR UNKNOWN INDICATION
     Dosage: UNK
     Route: 065
  73. ABILIFY [Suspect]
     Active Substance: ARIPIPRAZOLE
     Dosage: 10 MG, QD ( (STRENGTH: 20 MG, TAKE ONE HALF TABLET)
     Route: 048
     Dates: start: 20130114, end: 20130213
  74. ABILIFY [Suspect]
     Active Substance: ARIPIPRAZOLE
     Dosage: 20 MG, QD
     Route: 048
     Dates: start: 20130114, end: 20130213
  75. ABILIFY [Suspect]
     Active Substance: ARIPIPRAZOLE
     Dosage: 10 MG, QD ( (STRENGTH: 20 MG, TAKE ONE HALF TABLET)
     Route: 048
     Dates: start: 20090227, end: 20100228
  76. ABILIFY [Suspect]
     Active Substance: ARIPIPRAZOLE
     Dosage: 10 MG, QD ( (STRENGTH: 20 MG, TAKE ONE HALF TABLET)
     Route: 048
     Dates: start: 20080905, end: 20090906
  77. VENLAFAXINE HCL [Concomitant]
     Active Substance: VENLAFAXINE HYDROCHLORIDE
     Dosage: 150 MG, QD (IN MORNING)
     Route: 048
  78. ACYCLOVIR. [Concomitant]
     Active Substance: ACYCLOVIR
     Dosage: (APPLY THIN LAYER TO AFFECTED AREA 5 TIMES EVERY DAY)
     Route: 061
  79. SERTRALINE HCL [Concomitant]
     Active Substance: SERTRALINE HYDROCHLORIDE
     Dosage: 50 MG, QD (STRENGTH: 100 MG, TAKE ONE-HALF TABLET BY MOUTH EVERY MORNING)
     Route: 048
     Dates: start: 20120524, end: 20130525
  80. SERTRALINE HCL [Concomitant]
     Active Substance: SERTRALINE HYDROCHLORIDE
     Dosage: 50 MG, QD (STRENGTH: 100 MG, TAKE ONE-HALF TABLET BY MOUTH EVERY MORNING)
     Route: 048
     Dates: start: 20100723, end: 20110724
  81. TOPIRAMATE. [Concomitant]
     Active Substance: TOPIRAMATE
     Indication: PRODUCT USED FOR UNKNOWN INDICATION
     Dosage: 100 MG, QD (TAKE ONE-HALF TABLET TWICE A DAY)
     Route: 048
     Dates: start: 20140129, end: 20150130
  82. NITROFURANTOIN MONOHYDRATE MACROCRYSTALS [Concomitant]
     Active Substance: NITROFURANTOIN\NITROFURANTOIN MONOHYDRATE
     Indication: PRODUCT USED FOR UNKNOWN INDICATION
     Dosage: 100 MG, BID
     Route: 048
     Dates: start: 20131212, end: 20140111
  83. MULTIVITAMIN [Concomitant]
     Active Substance: VITAMINS
     Dosage: 1 DF, QD
     Route: 048
     Dates: start: 20161014, end: 20161113
  84. BACITRACIN ZINC AND POLYMYXIN B SULFATE [Concomitant]
     Active Substance: BACITRACIN ZINC\POLYMYXIN B SULFATE
     Indication: PROPHYLAXIS
     Dosage: SMALL SMALL AMOUNT TO EFFECTED AREA TWICE A DAY, BID
     Route: 061
     Dates: start: 20090630, end: 20090730
  85. INFLUENZA [Concomitant]
     Active Substance: INFLUENZA VIRUS VACCINE
     Dosage: UNK
     Route: 065
     Dates: start: 20160927, end: 20160927
  86. MICONAZOLE NITRATE. [Concomitant]
     Active Substance: MICONAZOLE NITRATE
     Dosage: APPLY A SUFFICIENT AMOUNT EXTRENALY
     Route: 061
     Dates: start: 20161008, end: 20161115
  87. MELATONIN [Concomitant]
     Active Substance: MELATONIN
     Indication: INSOMNIA
     Dosage: 3 MG, QD
     Route: 048
  88. ABILIFY [Suspect]
     Active Substance: ARIPIPRAZOLE
     Indication: POST-TRAUMATIC STRESS DISORDER
     Dosage: 10 MG, QD (STRENGTH: 20 MG TAKE ONE-HALF TABLET BY MOUTH EVERY MORNING)
     Route: 048
     Dates: start: 20141003, end: 20151004
  89. ABILIFY [Suspect]
     Active Substance: ARIPIPRAZOLE
     Dosage: 20 MG, QD
     Route: 048
     Dates: start: 20140629, end: 20150130
  90. ABILIFY [Suspect]
     Active Substance: ARIPIPRAZOLE
     Dosage: 20 MG, QD
     Route: 048
     Dates: start: 20110513, end: 20120513
  91. ABILIFY [Suspect]
     Active Substance: ARIPIPRAZOLE
     Dosage: 20 MG, QD
     Route: 048
     Dates: start: 20110414, end: 20120414
  92. LAMOTRIGINE. [Concomitant]
     Active Substance: LAMOTRIGINE
     Indication: PRODUCT USED FOR UNKNOWN INDICATION
     Dosage: STRENGTH: 200 MG, TAKE ONE-HALF TABLET MORNING FOR 14 DAYS, THEN TAKE ONE EVERY MORNING
     Route: 048
     Dates: start: 20140716, end: 20150717
  93. VENLAFAXINE HCL [Concomitant]
     Active Substance: VENLAFAXINE HYDROCHLORIDE
     Indication: DEPRESSION
     Dosage: 150 MG, QD (IN MORNING)
     Route: 048
     Dates: start: 20140516, end: 20150516
  94. ACYCLOVIR. [Concomitant]
     Active Substance: ACYCLOVIR
     Indication: VIRAL INFECTION
     Dosage: (APPLY THIN LAYER TO AFFECTED AREA 5 TIMES EVERY DAY)
     Route: 061
     Dates: start: 20140312, end: 20150313
  95. SERTRALINE HCL [Concomitant]
     Active Substance: SERTRALINE HYDROCHLORIDE
     Indication: DEPRESSION
     Dosage: 50 MG, QD (STRENGTH: 100 MG, TAKE ONE-HALF TABLET BY MOUTH EVERY MORNING)
     Route: 048
     Dates: start: 20130208, end: 20140209
  96. SERTRALINE HCL [Concomitant]
     Active Substance: SERTRALINE HYDROCHLORIDE
     Dosage: 50 MG, QD (STRENGTH: 100 MG, TAKE ONE-HALF TABLET BY MOUTH EVERY MORNING)
     Route: 048
     Dates: start: 20080418, end: 20090419
  97. HALOPERIDOL. [Concomitant]
     Active Substance: HALOPERIDOL
     Indication: PRODUCT USED FOR UNKNOWN INDICATION
     Dosage: UNK (EVERY 6 HOURS AS NEEDED 5MG/1ML)
     Route: 030
     Dates: start: 20100613, end: 20100617
  98. CYCLOBENZAPRINE. [Concomitant]
     Active Substance: CYCLOBENZAPRINE
     Indication: MUSCLE RELAXANT THERAPY
     Dosage: 10 MG, TID
     Route: 048
     Dates: start: 20100211, end: 20100313
  99. ACETAMINOPHEN W/BUTALBITAL/CAFFEINE/CODEINE P [Concomitant]
     Active Substance: ACETAMINOPHEN\BUTALBITAL\CAFFEINE\CODEINE PHOSPHATE
     Indication: PAIN
     Dosage: STRENGTH: 325/50/40 MG, TAKE 1-2 TABLETS TWICE A DAY)
     Route: 048
     Dates: start: 20100208, end: 20100310
  100. ACETAMINOPHEN W/BUTALBITAL/CAFFEINE/CODEINE P [Concomitant]
     Active Substance: ACETAMINOPHEN\BUTALBITAL\CAFFEINE\CODEINE PHOSPHATE
     Dosage: STRENGTH: 325/50/40 MG, TAKE 1-2 TABLETS TWICE A DAY)
     Route: 048
  101. TDAP IPV [Concomitant]
     Active Substance: DIPHTHERIA AND TETANUS TOXOIDS AND ACELLULAR PERTUSSIS ADSORBED AND INACTIVATED POLIOVIRUS VACCINE
     Indication: IMMUNISATION
     Dosage: UNK
     Route: 065
     Dates: start: 20111118, end: 20111118
  102. ABILIFY [Suspect]
     Active Substance: ARIPIPRAZOLE
     Dosage: 5 MG, QD (STRENGTH: 10 MG, TAKE ONE HALF TABLET)
     Route: 048
     Dates: start: 20140507, end: 20150508
  103. ABILIFY [Suspect]
     Active Substance: ARIPIPRAZOLE
     Dosage: 10 MG, QD ( (STRENGTH: 20 MG, TAKE ONE HALF TABLET)
     Route: 048
     Dates: start: 20080908, end: 20090909
  104. SERTRALINE HCL [Concomitant]
     Active Substance: SERTRALINE HYDROCHLORIDE
     Dosage: 50 MG, QD (STRENGTH: 100 MG, TAKE ONE-HALF TABLET BY MOUTH EVERY MORNING)
     Route: 048
     Dates: start: 20100823, end: 20110824
  105. SERTRALINE HCL [Concomitant]
     Active Substance: SERTRALINE HYDROCHLORIDE
     Dosage: 50 MG, QD (STRENGTH: 100 MG, TAKE ONE-HALF TABLET BY MOUTH EVERY MORNING)
     Route: 048
     Dates: start: 20081212, end: 20091213
  106. SERTRALINE HCL [Concomitant]
     Active Substance: SERTRALINE HYDROCHLORIDE
     Dosage: 50 MG, QD (STRENGTH: 100 MG, TAKE ONE-HALF TABLET BY MOUTH EVERY MORNING)
     Route: 048
     Dates: start: 20080320, end: 20080419
  107. BUSPIRONE HCL [Concomitant]
     Active Substance: BUSPIRONE HYDROCHLORIDE
     Indication: ANXIETY
     Dosage: 5 MG, BID AS NEEDED (ONE HALF TABLET, STRENGTH: 10 MG)
     Route: 065
     Dates: start: 20110418, end: 20120418
  108. ORLISTAT. [Concomitant]
     Active Substance: ORLISTAT
     Dosage: 120 MG, TID
     Route: 048
     Dates: start: 20091002, end: 20091101
  109. HALOPERIDOL. [Concomitant]
     Active Substance: HALOPERIDOL
     Indication: PRODUCT USED FOR UNKNOWN INDICATION
     Dosage: 5 MG, QID (AS NEEDED)
     Route: 048
     Dates: start: 20100613, end: 20100617
  110. LORAZEPAM. [Concomitant]
     Active Substance: LORAZEPAM
     Indication: PRODUCT USED FOR UNKNOWN INDICATION
     Dosage: 2 MG, Q4HR
     Route: 048
     Dates: start: 20100613, end: 20100617
  111. CHOLECALCIFEROL [Concomitant]
     Active Substance: CHOLECALCIFEROL
     Dosage: 1000 IU, QD
     Route: 048
     Dates: start: 20160912, end: 20170913
  112. LURASIDONE [Concomitant]
     Active Substance: LURASIDONE
     Indication: PRODUCT USED FOR UNKNOWN INDICATION
     Dosage: 40 MG, QD
     Route: 048
     Dates: start: 20160913, end: 20170917
  113. LURASIDONE [Concomitant]
     Active Substance: LURASIDONE
     Dosage: 80 MG, QD
     Route: 048
     Dates: start: 20161014, end: 20161113
  114. LURASIDONE [Concomitant]
     Active Substance: LURASIDONE
     Dosage: UNK
     Route: 065
  115. FERROUS SULFATE. [Concomitant]
     Active Substance: FERROUS SULFATE
     Indication: PRODUCT USED FOR UNKNOWN INDICATION
     Dosage: UNK
     Route: 065
  116. MICONAZOLE NITRATE. [Concomitant]
     Active Substance: MICONAZOLE NITRATE
     Indication: PRODUCT USED FOR UNKNOWN INDICATION
     Dosage: APPLY A SUFFICIENT AMOUNT EXTRENALY
     Route: 061
     Dates: start: 20161013, end: 20161112
  117. TEMAZEPAM. [Concomitant]
     Active Substance: TEMAZEPAM
     Indication: PRODUCT USED FOR UNKNOWN INDICATION
     Dosage: UNK, QD (STRENGTH: 15 MG, TAKE 1-2 CAPSULES AS NEEDED)
     Route: 048
     Dates: start: 20100723, end: 20110123

REACTIONS (55)
  - Mental disorder [Unknown]
  - Uterine leiomyoma [Unknown]
  - Obsessive-compulsive personality disorder [Not Recovered/Not Resolved]
  - Schizoaffective disorder bipolar type [Unknown]
  - Lung disorder [Unknown]
  - Cough [Unknown]
  - Treatment noncompliance [Unknown]
  - Marital problem [Unknown]
  - Divorced [Unknown]
  - Suicidal ideation [Unknown]
  - Liposuction [Unknown]
  - Candida infection [Recovering/Resolving]
  - Tuberculosis [Not Recovered/Not Resolved]
  - Tooth disorder [Unknown]
  - Vaginal infection [Unknown]
  - Bereavement [Unknown]
  - Oral herpes [Unknown]
  - Upper respiratory tract infection [Unknown]
  - Drug hypersensitivity [Unknown]
  - Headache [Not Recovered/Not Resolved]
  - Urinary incontinence [Unknown]
  - Accommodation disorder [Unknown]
  - Anaemia [Unknown]
  - Hallucination, auditory [Unknown]
  - Hyperglycaemia [Unknown]
  - Product use in unapproved indication [Unknown]
  - Psychotic disorder [Unknown]
  - Rhinitis allergic [Unknown]
  - Obesity [Not Recovered/Not Resolved]
  - Obsessive-compulsive disorder [Unknown]
  - Weight decreased [Unknown]
  - Economic problem [Unknown]
  - Trichomoniasis [Unknown]
  - Blunted affect [Unknown]
  - Back pain [Unknown]
  - Post-traumatic stress disorder [Unknown]
  - Gambling disorder [Recovered/Resolved]
  - Tinea infection [Recovering/Resolving]
  - Foot deformity [Unknown]
  - Micturition urgency [Unknown]
  - Bipolar I disorder [Unknown]
  - Dysmenorrhoea [Unknown]
  - Impulsive behaviour [Unknown]
  - Vaginal discharge [Unknown]
  - Herpes simplex [Not Recovered/Not Resolved]
  - Infertility [Unknown]
  - Dysuria [Unknown]
  - Myopia [Not Recovered/Not Resolved]
  - Hallucination, visual [Unknown]
  - Pruritus [Recovered/Resolved]
  - Bacteriuria [Unknown]
  - Spinal osteoarthritis [Unknown]
  - Mental impairment [Unknown]
  - Bacterial vaginosis [Unknown]
  - Cystitis [Unknown]

NARRATIVE: CASE EVENT DATE: 200806
